FAERS Safety Report 6892994-X (Version None)
Quarter: 2010Q3

REPORT INFORMATION
  Report Type: 
  Country: None (occurrence: None)
  Receive Date: 20100731
  Receipt Date: 20090116
  Transmission Date: 20110219
  Serious: Yes (Other)
  Sender: FDA-Public Use
  Company Number: US-PFIZER INC-2008098426

PATIENT
  Sex: Female
  Weight: 43.181 kg

DRUGS (6)
  1. NORVASC [Suspect]
     Dosage: 5 MG, 1X/DAY
     Dates: start: 20070101
  2. NORVASC [Suspect]
  3. SYNTHROID [Concomitant]
     Indication: THYROID DISORDER
  4. ACIPHEX [Concomitant]
  5. VITAMIN D [Concomitant]
  6. IBANDRONATE SODIUM [Concomitant]

REACTIONS (3)
  - BLOOD CHOLESTEROL INCREASED [None]
  - BLOOD PRESSURE INADEQUATELY CONTROLLED [None]
  - EPISTAXIS [None]
